FAERS Safety Report 24961835 (Version 1)
Quarter: 2025Q1

REPORT INFORMATION
  Report Type: Spontaneous
  Country: IT (occurrence: IT)
  Receive Date: 20250212
  Receipt Date: 20250212
  Transmission Date: 20250409
  Serious: Yes (Life-Threatening, Hospitalization)
  Sender: BRISTOL-MYERS SQUIBB COMPANY
  Company Number: None

PATIENT
  Age: 54 Year
  Sex: Female

DRUGS (2)
  1. MAVACAMTEN [Suspect]
     Active Substance: MAVACAMTEN
     Indication: Hypertrophic cardiomyopathy
     Dosage: 5 MG 1 TABLET /DAY
     Route: 048
     Dates: start: 20250131, end: 20250203
  2. METOPROLOL [Concomitant]
     Active Substance: METOPROLOL
     Indication: Hypertrophic cardiomyopathy
     Route: 048

REACTIONS (1)
  - Hypersensitivity [Recovered/Resolved]

NARRATIVE: CASE EVENT DATE: 20250201
